FAERS Safety Report 6312296-X (Version None)
Quarter: 2009Q3

REPORT INFORMATION
  Report Type: 
  Country: None (occurrence: None)
  Receive Date: 20090817
  Receipt Date: 20090811
  Transmission Date: 20100115
  Serious: Yes (Death, Hospitalization, Other)
  Sender: FDA-Public Use
  Company Number: CA-BAXTER-2009BH012722

PATIENT
  Age: 63 Year
  Sex: Female

DRUGS (3)
  1. IFOSFAMIDE [Suspect]
     Indication: LUNG CANCER METASTATIC
     Route: 042
     Dates: start: 19880923, end: 19880928
  2. ETOPOSIDE [Suspect]
     Indication: LUNG CANCER METASTATIC
     Route: 042
     Dates: start: 19880923, end: 19880928
  3. CISPLATIN [Suspect]
     Indication: LUNG CANCER METASTATIC
     Route: 042
     Dates: start: 19880923, end: 19880928

REACTIONS (6)
  - CONVULSION [None]
  - DEPRESSION [None]
  - DYSPNOEA [None]
  - MALAISE [None]
  - SEPSIS [None]
  - VOMITING [None]
